FAERS Safety Report 6729896-5 (Version None)
Quarter: 2010Q2

REPORT INFORMATION
  Report Type: 
  Country: None (occurrence: None)
  Receive Date: 20100518
  Receipt Date: 20100504
  Transmission Date: 20101027
  Serious: Yes (Hospitalization)
  Sender: FDA-Public Use
  Company Number: PHHY2010ES28792

PATIENT
  Age: 87 Year
  Sex: Female

DRUGS (10)
  1. CO-VALS [Suspect]
     Dosage: UNK (320/12.5 MG)
     Dates: end: 20090613
  2. DICLOFENAC [Interacting]
     Dosage: UNK
     Dates: start: 20090530
  3. FUROSEMIDE [Interacting]
     Indication: HYPERTENSION
     Dosage: 40 MG, DAILY
     Dates: end: 20090613
  4. NAPROXEN [Interacting]
     Dosage: UNK
     Dates: start: 20090522
  5. ATENOLOL [Concomitant]
     Dosage: UNK
  6. SIMVASTATIN [Concomitant]
     Dosage: UNK
  7. NITROGLYCERIN [Concomitant]
     Dosage: UNK
  8. ISCOVER [Concomitant]
     Dosage: UNK
  9. FERROGRADUMET [Concomitant]
     Dosage: UNK
  10. OMEPRAZOLE [Concomitant]
     Dosage: UNK

REACTIONS (2)
  - DRUG INTERACTION [None]
  - RENAL FAILURE ACUTE [None]
